FAERS Safety Report 7282262-9 (Version None)
Quarter: 2011Q1

REPORT INFORMATION
  Report Type: 
  Country: None (occurrence: None)
  Receive Date: 20110125
  Receipt Date: 20110106
  Transmission Date: 20110831
  Serious: Yes (Hospitalization, Other)
  Sender: FDA-Public Use
  Company Number: 2010P1002147

PATIENT
  Age: 6 Year
  Sex: Male
  Weight: 14.9687 kg

DRUGS (5)
  1. CARBAMAZEPINE [Suspect]
     Indication: CONVULSION
     Dosage: 100 MG;BID;PO; 100 MG;TID;PO
     Route: 048
     Dates: start: 20080702, end: 20080707
  2. CARBAMAZEPINE [Suspect]
     Indication: CONVULSION
     Dosage: 100 MG;BID;PO; 100 MG;TID;PO
     Route: 048
     Dates: start: 20080708, end: 20080701
  3. KEPPRA [Suspect]
     Indication: CONVULSION
     Dosage: 250 MG;AM;PO; 500 MG;PM;PO
     Route: 048
     Dates: start: 20050505, end: 20100721
  4. KEPPRA [Suspect]
     Indication: CONVULSION
     Dosage: 250 MG;AM;PO; 500 MG;PM;PO
     Route: 048
     Dates: start: 20050505, end: 20100721
  5. DIASTAT ACUDIAL (DIAZEPAM RECTAL GEL) [Concomitant]

REACTIONS (25)
  - PYREXIA [None]
  - PRODUCTIVE COUGH [None]
  - DECREASED APPETITE [None]
  - TACHYCARDIA [None]
  - LIPASE INCREASED [None]
  - PANCREATITIS [None]
  - PETECHIAE [None]
  - SCAR [None]
  - OBSTRUCTION [None]
  - STEVENS-JOHNSON SYNDROME [None]
  - VOMITING [None]
  - ALANINE AMINOTRANSFERASE INCREASED [None]
  - HEPATITIS [None]
  - BLOOD AMYLASE INCREASED [None]
  - ABDOMINAL PAIN [None]
  - ASPARTATE AMINOTRANSFERASE INCREASED [None]
  - ANTICONVULSANT DRUG LEVEL DECREASED [None]
  - DRUG HYPERSENSITIVITY [None]
  - DEHYDRATION [None]
  - FLUID INTAKE REDUCED [None]
  - ABNORMAL BEHAVIOUR [None]
  - URINARY TRACT INFECTION [None]
  - BLOOD SODIUM DECREASED [None]
  - VIRAL INFECTION [None]
  - ENCEPHALOPATHY [None]
